FAERS Safety Report 4752516-6 (Version None)
Quarter: 2005Q3

REPORT INFORMATION
  Report Type: 
  Country: None (occurrence: None)
  Receive Date: 20050825
  Receipt Date: 20050812
  Transmission Date: 20060218
  Serious: Yes (Hospitalization, Other)
  Sender: FDA-Public Use
  Company Number: PHFR2005GB02775

PATIENT
  Sex: Male

DRUGS (2)
  1. TEGRETOL [Suspect]
     Indication: AFFECTIVE DISORDER
     Dosage: 400MG/600MG (1G/DAY)
     Route: 048
     Dates: end: 20050801
  2. DIAZEPAM [Concomitant]
     Indication: ANXIETY
     Dosage: 30MG/DAY
     Route: 048

REACTIONS (3)
  - BLOOD SODIUM DECREASED [None]
  - CHEST PAIN [None]
  - HYPONATRAEMIA [None]
